FAERS Safety Report 12259737 (Version 1)
Quarter: 2016Q2

REPORT INFORMATION
  Report Type: Spontaneous
  Country: US (occurrence: US)
  Receive Date: 20160412
  Receipt Date: 20160412
  Transmission Date: 20160815
  Serious: No
  Sender: FDA-Public Use
  Company Number: US-SA-2015SA127779

PATIENT
  Sex: Male

DRUGS (1)
  1. ALLEGRA ALLERGY [Suspect]
     Active Substance: FEXOFENADINE HYDROCHLORIDE
     Indication: SEASONAL ALLERGY
     Dosage: STARTED 5 YEARS AGO
     Route: 048
     Dates: end: 20150818

REACTIONS (4)
  - Drug withdrawal syndrome [Unknown]
  - Anxiety [Unknown]
  - Pruritus [Unknown]
  - Panic attack [Unknown]
